FAERS Safety Report 5681243-6 (Version None)
Quarter: 2008Q1

REPORT INFORMATION
  Report Type: 
  Country: None (occurrence: None)
  Receive Date: 20080326
  Receipt Date: 20070110
  Transmission Date: 20080703
  Serious: No
  Sender: FDA-Public Use
  Company Number: US-BAYER-US-2007-000938

PATIENT
  Age: 37 Year
  Sex: Female

DRUGS (2)
  1. MIRENA [Suspect]
     Indication: CONTRACEPTION
     Route: 015
     Dates: start: 20060731, end: 20060807
  2. BROMOCRIPTINE MESYLATE [Concomitant]
     Indication: PITUITARY TUMOUR BENIGN
     Route: 048

REACTIONS (4)
  - HEADACHE [None]
  - IUCD COMPLICATION [None]
  - NAUSEA [None]
  - PROCEDURAL PAIN [None]
